FAERS Safety Report 14652622 (Version 1)
Quarter: 2018Q1

REPORT INFORMATION
  Report Type: Spontaneous
  Country: RU (occurrence: RU)
  Receive Date: 20180319
  Receipt Date: 20180319
  Transmission Date: 20180509
  Serious: Yes (Hospitalization, Other)
  Sender: FDA-Public Use
  Company Number: RU-ROCHE-2086083

PATIENT
  Age: 38 Year
  Sex: Male

DRUGS (2)
  1. RITUXIMAB. [Suspect]
     Active Substance: RITUXIMAB
     Indication: RHEUMATOID ARTHRITIS
     Route: 065
  2. JAQINUS [Suspect]
     Active Substance: TOFACITINIB CITRATE
     Indication: RHEUMATOID ARTHRITIS
     Route: 048
     Dates: start: 20171118

REACTIONS (11)
  - Alanine aminotransferase increased [Recovered/Resolved]
  - Blood urea increased [Unknown]
  - Red blood cell sedimentation rate increased [Unknown]
  - Haematocrit increased [Recovering/Resolving]
  - Mean platelet volume decreased [Unknown]
  - Seminoma [Unknown]
  - Lymphocyte percentage increased [Unknown]
  - C-reactive protein increased [Unknown]
  - Drug ineffective [Unknown]
  - Blood bilirubin increased [Unknown]
  - Neutrophil percentage increased [Unknown]

NARRATIVE: CASE EVENT DATE: 20171228
